FAERS Safety Report 6527966-8 (Version None)
Quarter: 2010Q1

REPORT INFORMATION
  Report Type: 
  Country: None (occurrence: None)
  Receive Date: 20100106
  Receipt Date: 20091228
  Transmission Date: 20100710
  Serious: Yes (Hospitalization)
  Sender: FDA-Public Use
  Company Number: FR-ASTRAZENECA-2009SE33831

PATIENT
  Age: 19095 Day
  Sex: Female

DRUGS (8)
  1. ENTOCORT EC [Suspect]
     Indication: CROHN'S DISEASE
     Route: 048
     Dates: start: 20090801, end: 20091026
  2. FIVASA [Suspect]
     Indication: CROHN'S DISEASE
     Route: 048
     Dates: start: 20091020, end: 20091020
  3. FLAGYL [Suspect]
     Indication: ABDOMINAL PAIN
     Route: 048
     Dates: start: 20091025, end: 20091026
  4. CIFLOX [Suspect]
     Indication: ABDOMINAL PAIN
     Route: 048
     Dates: start: 20091025, end: 20091026
  5. DI-ANTALVIC [Suspect]
     Indication: ABDOMINAL PAIN
     Route: 048
     Dates: start: 20091025, end: 20091026
  6. SPASFON [Suspect]
     Indication: ABDOMINAL PAIN
     Route: 048
     Dates: start: 20091024, end: 20091026
  7. CO-APROVEL [Suspect]
     Indication: HYPERTENSION
     Route: 048
     Dates: start: 20090801, end: 20091026
  8. SMECTA [Suspect]
     Indication: ABDOMINAL PAIN
     Route: 048
     Dates: start: 20091024, end: 20091026

REACTIONS (2)
  - AGRANULOCYTOSIS [None]
  - ASTHENIA [None]
